FAERS Safety Report 9847837 (Version 2)
Quarter: 2014Q1

REPORT INFORMATION
  Report Type: Report from Study
  Country: FR (occurrence: FR)
  Receive Date: 20140128
  Receipt Date: 20140130
  Transmission Date: 20141002
  Serious: Yes (Hospitalization)
  Sender: FDA-Public Use
  Company Number: FR-ROCHE-1335482

PATIENT
  Age: 53 Year
  Sex: Female

DRUGS (6)
  1. RITUXIMAB [Suspect]
     Indication: RHEUMATOID ARTHRITIS
     Dosage: ON 13/MAY/2009 DAY 15
     Route: 065
     Dates: start: 20090429
  2. RITUXIMAB [Suspect]
     Dosage: DAY 15 ON 23/DEC/2009
     Route: 065
     Dates: start: 20091213
  3. RITUXIMAB [Suspect]
     Dosage: ON 23/AUG/2010 DAY 15
     Route: 065
     Dates: start: 20100809
  4. LEFLUNOMIDE [Concomitant]
     Route: 065
     Dates: start: 20090429
  5. PARACETAMOL [Concomitant]
  6. METHYLPREDNISOLONE [Concomitant]
     Route: 065

REACTIONS (8)
  - General physical health deterioration [Recovered/Resolved]
  - Hypoglobulinaemia [Recovered/Resolved]
  - Infusion related reaction [Recovered/Resolved]
  - Erythema [Recovered/Resolved]
  - Pyrexia [Recovered/Resolved]
  - Odynophagia [Recovered/Resolved]
  - Pruritus [Recovered/Resolved]
  - Dyspnoea [Recovered/Resolved]
